FAERS Safety Report 4955401-X (Version None)
Quarter: 2006Q1

REPORT INFORMATION
  Report Type: 
  Country: None (occurrence: None)
  Receive Date: 20060322
  Receipt Date: 20060308
  Transmission Date: 20060701
  Serious: Yes (Other)
  Sender: FDA-Public Use
  Company Number: 223002

PATIENT
  Age: 44 Year
  Sex: Male

DRUGS (1)
  1. RITUXAN [Suspect]
     Dosage: UNK
     Route: 065

REACTIONS (2)
  - PURPURA [None]
  - PYREXIA [None]
